FAERS Safety Report 25068846 (Version 1)
Quarter: 2025Q1

REPORT INFORMATION
  Report Type: Spontaneous
  Country: US (occurrence: US)
  Receive Date: 20250312
  Receipt Date: 20250312
  Transmission Date: 20250409
  Serious: Yes (Hospitalization, Other)
  Sender: INCYTE
  Company Number: US-EVENT-001994

PATIENT
  Age: 54 Year

DRUGS (1)
  1. OPZELURA [Suspect]
     Active Substance: RUXOLITINIB PHOSPHATE
     Indication: Vitiligo
     Dosage: 1.5 PERCENT, BID (APPLY A THIN LAYER TO HYPOPIGMENTATION ON SKIN FOR 12 WEEKS AS DIRECTED)

REACTIONS (1)
  - Arthropathy [Unknown]
